FAERS Safety Report 16985745 (Version 2)
Quarter: 2019Q4

REPORT INFORMATION
  Report Type: Spontaneous
  Country: BR (occurrence: BR)
  Receive Date: 20191101
  Receipt Date: 20191113
  Transmission Date: 20200122
  Serious: Yes (Other)
  Sender: FDA-Public Use
  Company Number: NVSC2019BR018431

PATIENT
  Sex: Female

DRUGS (4)
  1. TEGRETOL XR [Suspect]
     Active Substance: CARBAMAZEPINE
     Indication: PRODUCT USED FOR UNKNOWN INDICATION
     Dosage: UNK
     Route: 065
  2. ALENDRONATE SODIUM TRIHYDRATE [Suspect]
     Active Substance: ALENDRONATE SODIUM
     Indication: PRODUCT USED FOR UNKNOWN INDICATION
     Dosage: UNK
     Route: 065
  3. PROLIA [Concomitant]
     Active Substance: DENOSUMAB
     Indication: PRODUCT USED FOR UNKNOWN INDICATION
     Dosage: UNK
     Route: 065
  4. SILDENAFIL CITRATE. [Suspect]
     Active Substance: SILDENAFIL CITRATE
     Indication: VASODILATATION
     Route: 065

REACTIONS (9)
  - Autoimmune thyroiditis [Unknown]
  - Diarrhoea [Unknown]
  - Abdominal pain [Unknown]
  - Scleroderma [Unknown]
  - Product prescribing error [Unknown]
  - Osteopenia [Unknown]
  - Mitral valve prolapse [Unknown]
  - Osteoporosis [Unknown]
  - Raynaud^s phenomenon [Unknown]
